FAERS Safety Report 20050210 (Version 1)
Quarter: 2021Q4

REPORT INFORMATION
  Report Type: Spontaneous
  Country: US (occurrence: US)
  Receive Date: 20211109
  Receipt Date: 20211109
  Transmission Date: 20220303
  Serious: No
  Sender: FDA-Public Use
  Company Number: US-PFIZER INC-202101197836

PATIENT
  Age: 70 Year
  Sex: Male
  Weight: 113.4 kg

DRUGS (1)
  1. BICILLIN L-A [Suspect]
     Active Substance: PENICILLIN G BENZATHINE
     Indication: Dermatitis
     Dosage: 600 UNITS

REACTIONS (4)
  - Pain [Recovering/Resolving]
  - Gait disturbance [Unknown]
  - Drug ineffective for unapproved indication [Unknown]
  - Off label use [Unknown]
